FAERS Safety Report 18491636 (Version 2)
Quarter: 2020Q4

REPORT INFORMATION
  Report Type: Spontaneous
  Country: US (occurrence: US)
  Receive Date: 20201111
  Receipt Date: 20201118
  Transmission Date: 20210114
  Serious: No
  Sender: FDA-Public Use
  Company Number: US-THERATECHNOLOGIES INC.-2020-THE-TES-000262

PATIENT
  Sex: Male

DRUGS (13)
  1. EGRIFTA SV [Suspect]
     Active Substance: TESAMORELIN ACETATE
     Indication: HIV INFECTION
     Dosage: 1.4 MG/ 0.35 ML DAILY
     Route: 058
     Dates: start: 202008, end: 202009
  2. EGRIFTA SV [Suspect]
     Active Substance: TESAMORELIN ACETATE
     Indication: OBESITY
  3. ATORVASTATIN [Concomitant]
     Active Substance: ATORVASTATIN
     Dosage: 10 MG, QD
  4. CETRIZINE [Concomitant]
     Active Substance: CETIRIZINE HYDROCHLORIDE
     Dosage: 10 MG, QD
  5. JULUCA [Concomitant]
     Active Substance: DOLUTEGRAVIR SODIUM\RILPIVIRINE HYDROCHLORIDE
  6. LORAZEPAM. [Concomitant]
     Active Substance: LORAZEPAM
     Dosage: 0.5 MG, PRN
  7. DIVALPROEX [Concomitant]
     Active Substance: DIVALPROEX SODIUM
     Dosage: 250 MG, BID
  8. DESCOVY [Concomitant]
     Active Substance: EMTRICITABINE\TENOFOVIR ALAFENAMIDE FUMARATE
     Dosage: UNK, QD
  9. LISINOPRIL. [Concomitant]
     Active Substance: LISINOPRIL
     Dosage: 30 MG, QD
  10. FLONASE                            /00908302/ [Concomitant]
     Active Substance: MOMETASONE FUROATE
  11. ASTRAGALUS GUMMIFER [Concomitant]
     Active Substance: UNSPECIFIED INGREDIENT
  12. FLUOXETINE [Concomitant]
     Active Substance: FLUOXETINE HYDROCHLORIDE
     Dosage: 10 MG, QD
  13. TESTOSTERONE. [Concomitant]
     Active Substance: TESTOSTERONE
     Dosage: UNK, QD

REACTIONS (2)
  - Upper respiratory tract congestion [Recovering/Resolving]
  - Retching [Recovering/Resolving]
